FAERS Safety Report 8802126 (Version 1)
Quarter: 2012Q4

REPORT INFORMATION
  Report Type: 
  Country: NL (occurrence: NL)
  Receive Date: 20120921
  Receipt Date: 20120921
  Transmission Date: 20130627
  Serious: Yes (Other)
  Sender: FDA-Public Use
  Company Number: PHHY2012NL081547

PATIENT
  Sex: Female
  Weight: 97 kg

DRUGS (1)
  1. METHYLPHENIDATE [Suspect]
     Indication: ATTENTION DEFICIT/HYPERACTIVITY DISORDER
     Dosage: 10 mg, TID
     Dates: start: 20120816, end: 20120907

REACTIONS (1)
  - Reversible ischaemic neurological deficit [Recovered/Resolved]
